FAERS Safety Report 13622198 (Version 1)
Quarter: 2017Q2

REPORT INFORMATION
  Report Type: Spontaneous
  Country: US (occurrence: US)
  Receive Date: 20170607
  Receipt Date: 20170607
  Transmission Date: 20170830
  Serious: Yes (Other)
  Sender: FDA-Public Use
  Company Number: US-ROCHE-350584

PATIENT
  Age: 42 Year
  Sex: Male

DRUGS (11)
  1. FLOVENT [Concomitant]
     Active Substance: FLUTICASONE PROPIONATE
     Indication: ASTHMA
     Route: 055
  2. NORTRIPTYLINE [Concomitant]
     Active Substance: NORTRIPTYLINE
  3. ZIDOVUDINE. [Concomitant]
     Active Substance: ZIDOVUDINE
  4. LAMIVUDINE. [Concomitant]
     Active Substance: LAMIVUDINE
  5. TENOFOVIR [Concomitant]
     Active Substance: TENOFOVIR
  6. FUZEON [Suspect]
     Active Substance: ENFUVIRTIDE
     Indication: HIV INFECTION
     Dosage: FORM STRENGTH=90 MG/ML
     Route: 058
     Dates: start: 20030715, end: 20030715
  7. LORAZEPAM. [Concomitant]
     Active Substance: LORAZEPAM
  8. LOPINAVIR/RITONAVIR [Concomitant]
     Active Substance: LOPINAVIR\RITONAVIR
  9. FUZEON [Suspect]
     Active Substance: ENFUVIRTIDE
     Dosage: RESTARTED WITH DOSE 0.00625 AND INCREASED IN 1HRLY
     Route: 058
  10. SEREVENT DISKUS [Concomitant]
     Active Substance: SALMETEROL XINAFOATE
     Indication: ASTHMA
     Route: 055
  11. BACTRIM [Concomitant]
     Active Substance: SULFAMETHOXAZOLE\TRIMETHOPRIM

REACTIONS (1)
  - Anaphylactic reaction [Recovered/Resolved]

NARRATIVE: CASE EVENT DATE: 20030715
